FAERS Safety Report 17217668 (Version 1)
Quarter: 2019Q4

REPORT INFORMATION
  Report Type: Spontaneous
  Country: US (occurrence: US)
  Receive Date: 20191231
  Receipt Date: 20191231
  Transmission Date: 20200122
  Serious: No
  Sender: FDA-Public Use
  Company Number: US-ASTRAZENECA-2019SF86373

PATIENT
  Age: 25507 Day
  Sex: Male
  Weight: 108.9 kg

DRUGS (12)
  1. SYMBICORT [Suspect]
     Active Substance: BUDESONIDE\FORMOTEROL FUMARATE DIHYDRATE
     Indication: ASTHMA
     Dosage: 2 PUFFS TWICE DAILY
     Route: 055
     Dates: start: 20191218
  2. NEXIUM 24HR [Suspect]
     Active Substance: ESOMEPRAZOLE MAGNESIUM
     Indication: GASTROOESOPHAGEAL REFLUX DISEASE
     Route: 048
     Dates: start: 2012, end: 2015
  3. B12 SHOTS [Concomitant]
     Active Substance: CYANOCOBALAMIN
     Indication: VITAMIN B12
     Dates: start: 20191218
  4. AMBIEN [Concomitant]
     Active Substance: ZOLPIDEM TARTRATE
     Indication: AFRICAN TRYPANOSOMIASIS
     Route: 048
     Dates: start: 2011
  5. RATNITIDINE [Concomitant]
     Indication: GASTROOESOPHAGEAL REFLUX DISEASE
  6. ALBUTEROL. [Concomitant]
     Active Substance: ALBUTEROL
  7. NEXIUM 24HR [Suspect]
     Active Substance: ESOMEPRAZOLE MAGNESIUM
     Indication: GASTROOESOPHAGEAL REFLUX DISEASE
     Route: 048
     Dates: start: 2015
  8. PREDNISONE. [Concomitant]
     Active Substance: PREDNISONE
     Dates: start: 20191218
  9. VASOTEC [Concomitant]
     Active Substance: ENALAPRIL MALEATE
     Indication: BLOOD GLUCOSE INCREASED
     Route: 048
     Dates: start: 1990
  10. SYMBICORT [Suspect]
     Active Substance: BUDESONIDE\FORMOTEROL FUMARATE DIHYDRATE
     Indication: SECRETION DISCHARGE
     Dosage: 2 PUFFS TWICE DAILY
     Route: 055
     Dates: start: 20191218
  11. LORAZEPAM. [Concomitant]
     Active Substance: LORAZEPAM
     Indication: AFRICAN TRYPANOSOMIASIS
     Route: 048
     Dates: start: 2017
  12. SYMBICORT [Suspect]
     Active Substance: BUDESONIDE\FORMOTEROL FUMARATE DIHYDRATE
     Indication: BRONCHITIS
     Dosage: 2 PUFFS TWICE DAILY
     Route: 055
     Dates: start: 20191218

REACTIONS (22)
  - Atypical mycobacterial infection [Unknown]
  - Arthritis [Unknown]
  - Candida infection [Unknown]
  - Feeling abnormal [Unknown]
  - Back disorder [Unknown]
  - Vitamin B12 deficiency [Unknown]
  - Pancreas infection [Unknown]
  - Extrasystoles [Unknown]
  - Productive cough [Unknown]
  - Dry mouth [Unknown]
  - Paraesthesia [Recovered/Resolved]
  - Reflux gastritis [Unknown]
  - Bronchitis chronic [Unknown]
  - Lung disorder [Unknown]
  - Upper-airway cough syndrome [Unknown]
  - Exostosis [Unknown]
  - Dry throat [Unknown]
  - Wheezing [Unknown]
  - Heart rate increased [Recovered/Resolved]
  - Gout [Unknown]
  - Post procedural infection [Unknown]
  - Product use issue [Unknown]

NARRATIVE: CASE EVENT DATE: 201903
